FAERS Safety Report 6566884-6 (Version None)
Quarter: 2010Q1

REPORT INFORMATION
  Report Type: 
  Country: None (occurrence: None)
  Receive Date: 20100202
  Receipt Date: 20100127
  Transmission Date: 20100710
  Serious: Yes (Other)
  Sender: FDA-Public Use
  Company Number: B0630480A

PATIENT
  Sex: Female

DRUGS (1)
  1. LAPATINIB DITOSYLATE [Suspect]
     Dosage: 1250MG PER DAY
     Route: 065
     Dates: start: 20090101, end: 20100101

REACTIONS (1)
  - METASTASES TO LIVER [None]
